FAERS Safety Report 13479756 (Version 1)
Quarter: 2017Q2

REPORT INFORMATION
  Report Type: Spontaneous
  Country: DE (occurrence: DE)
  Receive Date: 20170425
  Receipt Date: 20170425
  Transmission Date: 20170830
  Serious: Yes (Other)
  Sender: FDA-Public Use
  Company Number: DE-TEVA-760646GER

PATIENT
  Age: 59 Year
  Sex: Male
  Weight: 71 kg

DRUGS (5)
  1. PASCOFLAIR [Concomitant]
     Indication: SLEEP DISORDER
     Dosage: 1 DOSAGE FORMS DAILY; ONE TABLET EACH EVENING
     Route: 048
     Dates: start: 20161215, end: 20170108
  2. PIPAMPERON 40 MG [Concomitant]
     Indication: SLEEP DISORDER
     Dates: start: 201701
  3. PHENHYDAN [Suspect]
     Active Substance: PHENYTOIN
     Indication: EPILEPSY
     Dosage: 1 DOSAGE FORMS DAILY;
  4. ERGENYL 500 [Suspect]
     Active Substance: VALPROATE SODIUM
     Indication: EPILEPSY
  5. RISPERIDON [Suspect]
     Active Substance: RISPERIDONE
     Indication: PSYCHOTIC DISORDER

REACTIONS (2)
  - Tonic convulsion [Unknown]
  - Nocturia [Unknown]

NARRATIVE: CASE EVENT DATE: 20161222
